FAERS Safety Report 6661300-8 (Version None)
Quarter: 2010Q1

REPORT INFORMATION
  Report Type: 
  Country: None (occurrence: None)
  Receive Date: 20100331
  Receipt Date: 20100319
  Transmission Date: 20100710
  Serious: Yes (Death, Other)
  Sender: FDA-Public Use
  Company Number: JP-BAYER-200811989BYL

PATIENT
  Age: 51 Year
  Sex: Male
  Weight: 66 kg

DRUGS (10)
  1. NEXAVAR [Suspect]
     Indication: RENAL CELL CARCINOMA
     Dosage: UNIT DOSE: 200 MG
     Route: 048
     Dates: start: 20080428, end: 20080526
  2. NEXAVAR [Suspect]
     Dosage: TOTAL DAILY DOSE: 400 MG  UNIT DOSE: 200 MG
     Route: 048
     Dates: start: 20080527, end: 20080624
  3. NEXAVAR [Suspect]
     Dosage: TOTAL DAILY DOSE: 400 MG  UNIT DOSE: 200 MG
     Route: 048
     Dates: start: 20080722, end: 20080916
  4. SUMIFERON DS [Concomitant]
     Route: 058
     Dates: start: 20080412
  5. ALLOPURINOL [Concomitant]
     Route: 048
  6. D-ALFA [Concomitant]
     Route: 048
  7. DISOPYRAMIDE [Concomitant]
     Route: 048
  8. CALCIUM CARBONATE [Concomitant]
     Route: 048
  9. NORVASC [Concomitant]
     Route: 048
  10. CANDESARTAN CILEXETIL [Concomitant]
     Route: 048

REACTIONS (7)
  - ALOPECIA [None]
  - BONE MARROW FAILURE [None]
  - HEPATIC FUNCTION ABNORMAL [None]
  - INTESTINAL PERFORATION [None]
  - LIPASE INCREASED [None]
  - PALMAR-PLANTAR ERYTHRODYSAESTHESIA SYNDROME [None]
  - RENAL CELL CARCINOMA [None]
